FAERS Safety Report 15001552 (Version 1)
Quarter: 2018Q2

REPORT INFORMATION
  Report Type: Report from Study
  Country: IT (occurrence: IT)
  Receive Date: 20180612
  Receipt Date: 20180612
  Transmission Date: 20180711
  Serious: Yes (Other)
  Sender: FDA-Public Use
  Company Number: IT-MYLANLABS-2018M1039468

PATIENT
  Age: 40 Year
  Sex: Male

DRUGS (9)
  1. AMPICILLIN [Suspect]
     Active Substance: AMPICILLIN
     Indication: PRODUCT USED FOR UNKNOWN INDICATION
     Route: 065
  2. AMOXICILLIN/CLAVULANIC ACID [Suspect]
     Active Substance: AMOXICILLIN\CLAVULANIC ACID
     Indication: PRODUCT USED FOR UNKNOWN INDICATION
     Route: 065
  3. DURACEF                            /00554701/ [Suspect]
     Active Substance: CEFADROXIL
     Dosage: 20MG/ML IN 0.9% SODIUM CHLORIDE
     Route: 023
  4. PANACEF [Suspect]
     Active Substance: CEFACLOR
     Route: 061
  5. KEFORAL                            /00145501/ [Suspect]
     Active Substance: CEPHALEXIN
     Indication: PRODUCT USED FOR UNKNOWN INDICATION
     Dosage: 2MG/ML IN 0.9% SODIUM CHLORIDE
     Route: 023
  6. KEFORAL                            /00145501/ [Suspect]
     Active Substance: CEPHALEXIN
     Route: 061
  7. DURACEF                            /00554701/ [Suspect]
     Active Substance: CEFADROXIL
     Route: 061
  8. DURACEF                            /00554701/ [Suspect]
     Active Substance: CEFADROXIL
     Indication: PRODUCT USED FOR UNKNOWN INDICATION
     Dosage: 2MG/ML IN 0.9% SODIUM CHLORIDE
     Route: 023
  9. PANACEF [Suspect]
     Active Substance: CEFACLOR
     Indication: PRODUCT USED FOR UNKNOWN INDICATION
     Dosage: 2MG/ML IN 0.9% SODIUM CHLORIDE
     Route: 023

REACTIONS (3)
  - Erythema [Unknown]
  - Type IV hypersensitivity reaction [Unknown]
  - Therapeutic product cross-reactivity [Unknown]
